APPROVED DRUG PRODUCT: METHOTREXATE
Active Ingredient: METHOTREXATE
Strength: 5GM/50ML (100MG/ML)
Dosage Form/Route: SOLUTION;INTRAVENOUS
Application: N214121 | Product #001
Applicant: ACCORD HEALTHCARE INC
Approved: Aug 24, 2020 | RLD: Yes | RS: No | Type: DISCN